FAERS Safety Report 18294436 (Version 1)
Quarter: 2020Q3

REPORT INFORMATION
  Report Type: Report from Study
  Country: US (occurrence: US)
  Receive Date: 20200922
  Receipt Date: 20200922
  Transmission Date: 20201103
  Serious: Yes (Other)
  Sender: FDA-Public Use
  Company Number: US-JNJFOC-20200923618

PATIENT
  Age: 45 Year
  Sex: Female

DRUGS (27)
  1. PROMETHAZINE [Concomitant]
     Active Substance: PROMETHAZINE HYDROCHLORIDE
  2. NAPROXEN. [Concomitant]
     Active Substance: NAPROXEN
  3. AZATHIOPRINE. [Concomitant]
     Active Substance: AZATHIOPRINE
  4. CIPROFLOXACIN. [Concomitant]
     Active Substance: CIPROFLOXACIN
  5. METRONIDAZOLE. [Concomitant]
     Active Substance: METRONIDAZOLE
  6. ASACOL [Concomitant]
     Active Substance: MESALAMINE
  7. APAP W/HYDROCODONE [Concomitant]
     Active Substance: ACETAMINOPHEN\HYDROCODONE
  8. RIZATRIPTAN. [Concomitant]
     Active Substance: RIZATRIPTAN
  9. CANASA [Concomitant]
     Active Substance: MESALAMINE
  10. AMITRIPTYLINE [Concomitant]
     Active Substance: AMITRIPTYLINE
  11. HYDROCORTISONE. [Concomitant]
     Active Substance: HYDROCORTISONE
  12. HUMIRA [Concomitant]
     Active Substance: ADALIMUMAB
  13. STELARA [Suspect]
     Active Substance: USTEKINUMAB
     Indication: CROHN^S DISEASE
     Route: 058
     Dates: start: 20190116
  14. METOPROLOL. [Concomitant]
     Active Substance: METOPROLOL
  15. ONDANSETRON [Concomitant]
     Active Substance: ONDANSETRON
  16. MORPHINE [Concomitant]
     Active Substance: MORPHINE
  17. OXYCODONE [Concomitant]
     Active Substance: OXYCODONE
  18. LIALDA [Concomitant]
     Active Substance: MESALAMINE
  19. MESALAMINE. [Concomitant]
     Active Substance: MESALAMINE
  20. MAXALT [Concomitant]
     Active Substance: RIZATRIPTAN BENZOATE
  21. PROCTOSOL [Concomitant]
  22. STELARA [Suspect]
     Active Substance: USTEKINUMAB
  23. TOPIRAMATE. [Concomitant]
     Active Substance: TOPIRAMATE
  24. CYCLOBENZAPRINE. [Concomitant]
     Active Substance: CYCLOBENZAPRINE
  25. DICYCLOMINE                        /00068601/ [Concomitant]
     Active Substance: DICYCLOMINE HYDROCHLORIDE
  26. TOPIRAMATE. [Concomitant]
     Active Substance: TOPIRAMATE
  27. OXYCODONE/APAP                     /00867901/ [Concomitant]
     Active Substance: ACETAMINOPHEN\OXYCODONE HYDROCHLORIDE

REACTIONS (4)
  - Arthralgia [Not Recovered/Not Resolved]
  - Product dose omission issue [Unknown]
  - Crohn^s disease [Not Recovered/Not Resolved]
  - Headache [Not Recovered/Not Resolved]
